FAERS Safety Report 9988309 (Version 2)
Quarter: 2014Q1

REPORT INFORMATION
  Report Type: Report from Study
  Country: DE (occurrence: DE)
  Receive Date: 20140310
  Receipt Date: 20140310
  Transmission Date: 20141002
  Serious: Yes (Hospitalization, Other)
  Sender: FDA-Public Use
  Company Number: DE-ROCHE-1282995

PATIENT
  Age: 44 Year
  Sex: Male
  Weight: 78.2 kg

DRUGS (7)
  1. MYCOPHENOLATE MOFETIL [Suspect]
     Indication: RENAL TRANSPLANT
     Dosage: LAST DOSE: 29/OCT/2012
     Route: 048
     Dates: start: 20121009
  2. BASILIXIMAB [Suspect]
     Indication: RENAL TRANSPLANT
     Dosage: LAST DOSE PRIOR TO SAE: 13/OCT/2012
     Route: 042
     Dates: start: 20121009
  3. TACROLIMUS [Suspect]
     Indication: RENAL TRANSPLANT
     Dosage: LAST DOSE: 29/OCT/2012
     Route: 048
     Dates: start: 20121009
  4. SOLU-DECORTIN [Suspect]
     Indication: RENAL TRANSPLANT
     Dosage: LAST DOSE: 29/OCT/2012
     Route: 048
     Dates: start: 20121009, end: 20121018
  5. SOLU-DECORTIN [Suspect]
     Dosage: DOSE: FURTHER REDUCTION TO 10 MG
     Route: 048
     Dates: start: 20121031
  6. SOLU-DECORTIN [Suspect]
     Route: 048
     Dates: start: 20121024, end: 20121028
  7. SOLU-DECORTIN [Suspect]
     Route: 048
     Dates: start: 20121029

REACTIONS (2)
  - Kidney transplant rejection [Recovered/Resolved with Sequelae]
  - Blood creatinine increased [Recovered/Resolved with Sequelae]
